FAERS Safety Report 8463769-5 (Version None)
Quarter: 2012Q2

REPORT INFORMATION
  Report Type: 
  Country: None (occurrence: None)
  Receive Date: 20120625
  Receipt Date: 20120611
  Transmission Date: 20120825
  Serious: No
  Sender: FDA-Public Use
  Company Number: US-ASTRAZENECA-2012SE38905

PATIENT
  Sex: Female
  Weight: 65.8 kg

DRUGS (11)
  1. GLIMEPIRIDE [Concomitant]
  2. NIASPAN [Suspect]
     Route: 065
  3. ATORVASTATIN CALCIUM [Suspect]
     Route: 065
  4. ASPIRIN [Concomitant]
  5. OLMESARTAN MEDOXOMIL [Concomitant]
  6. CALCIUM CARBONATE [Concomitant]
  7. CYANOCOBALAMIN [Concomitant]
  8. MULTI-VITAMINS [Concomitant]
  9. AMLODIPINE BESYLATE [Concomitant]
  10. CRESTOR [Suspect]
     Route: 048
  11. FISH OIL [Concomitant]

REACTIONS (5)
  - PARAESTHESIA [None]
  - ERYTHEMA [None]
  - FEELING HOT [None]
  - FLUSHING [None]
  - MUSCLE SPASMS [None]
